FAERS Safety Report 11707919 (Version 1)
Quarter: 2015Q4

REPORT INFORMATION
  Report Type: Other
  Country: GB (occurrence: GB)
  Receive Date: 20151106
  Receipt Date: 20151106
  Transmission Date: 20160304
  Serious: Yes (Other)
  Sender: FDA-Public Use
  Company Number: GB-CIPLA LTD.-2015GB08437

PATIENT

DRUGS (1)
  1. TOPIRAMATE. [Suspect]
     Active Substance: TOPIRAMATE
     Indication: MIGRAINE
     Dosage: 100 MG, UNK
     Route: 048
     Dates: start: 20150801, end: 20151018

REACTIONS (7)
  - Pruritus [Unknown]
  - Papule [Unknown]
  - Rash generalised [Unknown]
  - Skin ulcer [Unknown]
  - Irritability [Unknown]
  - Erythema [Unknown]
  - Dry skin [Unknown]
